FAERS Safety Report 7929751-9 (Version None)
Quarter: 2011Q4

REPORT INFORMATION
  Report Type: 
  Country: None (occurrence: None)
  Receive Date: 20111121
  Receipt Date: 20111111
  Transmission Date: 20120403
  Serious: Yes (Hospitalization, Other)
  Sender: FDA-Public Use
  Company Number: PHEH2007US15445

PATIENT
  Sex: Female
  Weight: 68.027 kg

DRUGS (82)
  1. POTASSIUM [Concomitant]
  2. OMEPRAZOLE [Concomitant]
  3. POTASSIUM CHLORIDE [Concomitant]
     Dosage: 10 MG / DAILY
  4. NITROFURAN [Concomitant]
     Dosage: 100 MG / TWICE DAILY
  5. GLYBURIDE [Concomitant]
     Dosage: 5 MG / DAILY BEFORE NOON
  6. POTASSIUM CHLORIDE [Concomitant]
     Dosage: 20 MG/ 3 X DAY FOR 2 DAYS, THEN BID
  7. LIPITOR [Concomitant]
     Dosage: 40 MG / PM
  8. VALIUM [Concomitant]
     Dosage: UNK
  9. PAMIDRONATE DISODIUM [Concomitant]
     Dosage: UNK
  10. ZOLEDRONIC [Concomitant]
     Dosage: UNK
  11. GABAPENTIN [Concomitant]
     Dosage: 100 / T.I.D.
  12. LORATADINE [Concomitant]
  13. AREDIA [Suspect]
  14. REVLIMID [Concomitant]
     Dosage: UNK
     Dates: end: 20070701
  15. PROTONIX [Concomitant]
  16. VALTREX [Concomitant]
  17. XANAX [Concomitant]
  18. PERCOCET [Concomitant]
  19. PANTOPRAZOLE [Concomitant]
     Dosage: 40 MG / DAILY
  20. DESIPRAMIDE HCL [Concomitant]
     Dosage: 10 MG
  21. VELCADE [Concomitant]
     Dosage: UNK
     Route: 042
  22. ZANTAC [Concomitant]
     Dosage: UNK
  23. RESTORIL [Concomitant]
     Dosage: 1.5 MG / EVERY NIGHT AT BEDTIME
  24. ALENDRONATE SODIUM [Concomitant]
  25. ACYCLOVIR [Concomitant]
     Dosage: 800 MG / 5 X DAILY FOR 5 DAYS
     Route: 048
  26. ZOLOFT [Concomitant]
     Dosage: 100 MG /  DAILY
  27. DEXAMETHASONE [Concomitant]
  28. PRAVASTATIN [Concomitant]
     Dosage: 80 MG / DAILY
  29. PHENERGAN VC [Concomitant]
     Dosage: UNK
  30. RANITIDINE [Concomitant]
     Dosage: 150 MG / DAILY
  31. PROCRIT                            /00909301/ [Concomitant]
     Dosage: UNK / EVERY 2 WEEKS
  32. DILAUDID [Concomitant]
     Indication: PAIN
     Dosage: 2 MG / 1 OR 2 TABS EVERY 2 HRS, PRN
  33. PROMETHAZINE [Concomitant]
  34. CIPRO [Concomitant]
  35. CEFUROXIME [Concomitant]
  36. ZOLOFT [Concomitant]
     Dosage: 50 MG / TWICE DAILY
  37. ASPIRIN [Concomitant]
     Dosage: 81 MG / DAILY
  38. CYMBALTA [Concomitant]
     Dosage: 30 MG
  39. ROXICODONE [Concomitant]
     Dosage: 5 MG / AS NEEDED
  40. DECADRON [Concomitant]
     Dosage: UNK
  41. CYTOXAN [Concomitant]
     Dosage: UNK
  42. THALIDOMIDE [Concomitant]
     Dosage: UNK
  43. DEPO-MEDROL [Concomitant]
     Dosage: UNK
  44. QUININE SULFATE [Concomitant]
     Indication: MUSCLE SPASMS
     Dosage: 260 MG/ AS NEEDED
     Route: 048
  45. ALEVE                              /00256202/ [Concomitant]
     Dosage: UNK
  46. IPRATROPIUM BROMIDE [Concomitant]
  47. RADIATION THERAPY [Concomitant]
  48. PRAVACHOL [Concomitant]
  49. TEMAZEPAM [Concomitant]
  50. LORAZEPAM [Concomitant]
     Dosage: 7 MG / AS NEEDED
  51. NEURONTIN [Concomitant]
     Dosage: 300 MG /T.I.D.
     Route: 048
  52. LEVAQUIN [Concomitant]
  53. ANTINEOPLASTIC AGENTS [Concomitant]
  54. OXYCONTIN [Concomitant]
  55. OXYCODONE HCL AND ACETAMINOPHEN [Concomitant]
  56. MORPHINE SULFATE [Concomitant]
     Dosage: 60 MG / TWICE DAILY
  57. OXYCODONE HCL [Concomitant]
     Dosage: 40 MG / TWICE DAILY
  58. ZITHROMAX [Concomitant]
     Dosage: UNK
  59. STEROIDS NOS [Concomitant]
     Dosage: 20 MG
  60. ATENOLOL [Concomitant]
     Dosage: 50 MG / DAILY
  61. SERTRALINE HYDROCHLORIDE [Concomitant]
  62. ROPINIROLE HYDROCHLORIDE [Concomitant]
  63. COMPRO [Concomitant]
  64. PREDNISONE TAB [Concomitant]
  65. NITROFURANTOIN [Concomitant]
  66. REQUIP [Concomitant]
  67. TEQUIN [Concomitant]
     Dosage: 400 MG / DAILY
  68. ZOCOR [Concomitant]
     Dosage: 40 MG / TWICE DAILY
  69. PRINZIDE [Concomitant]
     Dosage: 10/12.5 / DAILY
  70. ATIVAN [Concomitant]
     Dosage: 1 MG / TWICE DAILY
  71. ROXICET [Concomitant]
     Dosage: UNK
  72. FEXOFENADINE HCL [Concomitant]
  73. ENABLEX [Concomitant]
  74. ZOMETA [Suspect]
  75. LISINOPRIL [Concomitant]
  76. HYDROCHLOROTHIAZIDE [Concomitant]
  77. ARANESP [Concomitant]
  78. ZETIA [Concomitant]
     Dosage: 10 MG / DAILY
  79. PRAVASTATIN SODIUM [Concomitant]
  80. FUROSEMIDE [Concomitant]
  81. NOVOLIN 70/30 [Concomitant]
  82. MACROBID [Concomitant]

REACTIONS (51)
  - LUMBAR VERTEBRAL FRACTURE [None]
  - NEUROFIBROMA [None]
  - SPINAL COLUMN STENOSIS [None]
  - INJURY [None]
  - BACK PAIN [None]
  - PAIN IN EXTREMITY [None]
  - TENDON DISORDER [None]
  - ONYCHOMYCOSIS [None]
  - HAEMATURIA [None]
  - MULTIPLE MYELOMA [None]
  - BONE MARROW FAILURE [None]
  - SPINAL OSTEOARTHRITIS [None]
  - CARDIAC FAILURE CONGESTIVE [None]
  - OSTEONECROSIS OF JAW [None]
  - BONE DISORDER [None]
  - BIOPSY BONE MARROW ABNORMAL [None]
  - THROMBOCYTOPENIA [None]
  - PLASMACYTOMA [None]
  - PLASMACYTOSIS [None]
  - SPINAL DISORDER [None]
  - SPLENOMEGALY [None]
  - PARAESTHESIA [None]
  - FACIAL PAIN [None]
  - GROIN PAIN [None]
  - MYALGIA [None]
  - INFECTION [None]
  - RADICULAR PAIN [None]
  - TRACHEOBRONCHITIS [None]
  - DIABETES MELLITUS [None]
  - DYSPHONIA [None]
  - INFLAMMATION [None]
  - LEUKOPENIA [None]
  - INTERVERTEBRAL DISC DISORDER [None]
  - FALL [None]
  - NAIL DYSTROPHY [None]
  - RENAL FAILURE [None]
  - ANAEMIA [None]
  - PNEUMONIA [None]
  - OSTEOMYELITIS [None]
  - NEUROPATHY PERIPHERAL [None]
  - WEIGHT INCREASED [None]
  - JOINT EFFUSION [None]
  - PATELLA FRACTURE [None]
  - ANXIETY [None]
  - DENTAL CARIES [None]
  - ONYCHALGIA [None]
  - PAIN [None]
  - ARTHRALGIA [None]
  - OEDEMA PERIPHERAL [None]
  - DIZZINESS [None]
  - CYSTITIS NONINFECTIVE [None]
